FAERS Safety Report 9257549 (Version 4)
Quarter: 2013Q2

REPORT INFORMATION
  Report Type: Spontaneous
  Country: JP (occurrence: JP)
  Receive Date: 20130426
  Receipt Date: 20130607
  Transmission Date: 20140414
  Serious: Yes (Other)
  Sender: FDA-Public Use
  Company Number: JP-PFIZER INC-2013128868

PATIENT
  Age: 73 Year
  Sex: Male

DRUGS (3)
  1. LYRICA [Suspect]
     Indication: SCIATICA
     Dosage: 50 MG/DAY
     Route: 048
  2. CELECOX [Suspect]
     Indication: SCIATICA
     Dosage: UNK
     Route: 048
  3. TAKEPRON [Concomitant]
     Dosage: UNK

REACTIONS (2)
  - Off label use [Unknown]
  - Pneumonia [Recovered/Resolved]
